FAERS Safety Report 23610296 (Version 1)
Quarter: 2024Q1

REPORT INFORMATION
  Report Type: Spontaneous
  Country: US (occurrence: US)
  Receive Date: 20240308
  Receipt Date: 20240308
  Transmission Date: 20240410
  Serious: No
  Sender: FDA-Public Use
  Company Number: US-AMGEN-USASP2024044984

PATIENT
  Age: 75 Year
  Sex: Male
  Weight: 45 kg

DRUGS (1)
  1. REPATHA [Suspect]
     Active Substance: EVOLOCUMAB
     Indication: Myocardial infarction
     Dosage: 420 MILLIGRAM, QMO
     Route: 065

REACTIONS (5)
  - Device difficult to use [Unknown]
  - Drug dose omission by device [Unknown]
  - Weight decreased [Unknown]
  - Injection site pain [Unknown]
  - Injection site haemorrhage [Unknown]

NARRATIVE: CASE EVENT DATE: 20240301
